FAERS Safety Report 22172936 (Version 1)
Quarter: 2023Q2

REPORT INFORMATION
  Report Type: Report from Study
  Country: ES (occurrence: ES)
  Receive Date: 20230404
  Receipt Date: 20230404
  Transmission Date: 20230721
  Serious: Yes (Life-Threatening, Hospitalization)
  Sender: FDA-Public Use
  Company Number: ES-MYLANLABS-2023M1035591

PATIENT
  Age: 28 Year
  Sex: Male

DRUGS (3)
  1. ACETAMINOPHEN [Suspect]
     Active Substance: ACETAMINOPHEN
     Indication: Product used for unknown indication
     Dosage: UNK
     Route: 065
  2. KETAMINE [Suspect]
     Active Substance: KETAMINE
     Indication: Product used for unknown indication
     Dosage: UNK
     Route: 065
  3. DIAZEPAM [Suspect]
     Active Substance: DIAZEPAM
     Indication: Product used for unknown indication
     Dosage: UNK
     Route: 065

REACTIONS (16)
  - Depressed level of consciousness [Unknown]
  - Hyperthermia [Unknown]
  - Hypertonia [Unknown]
  - Mydriasis [Unknown]
  - Seizure [Unknown]
  - Drug abuse [Unknown]
  - Multiple organ dysfunction syndrome [Unknown]
  - Rhabdomyolysis [Unknown]
  - Cardiac arrest [Unknown]
  - Hypotension [Unknown]
  - Hepatic function abnormal [Unknown]
  - Hypoxia [Unknown]
  - Biliary ischaemia [Unknown]
  - Disorientation [Unknown]
  - Memory impairment [Unknown]
  - Condition aggravated [Unknown]
